FAERS Safety Report 8946867 (Version 1)
Quarter: 2012Q4

REPORT INFORMATION
  Report Type: 
  Country: US (occurrence: US)
  Receive Date: 20121205
  Receipt Date: 20121205
  Transmission Date: 20130627
  Serious: Yes (Hospitalization, Other)
  Sender: FDA-Public Use
  Company Number: US-PFIZER INC-2012168373

PATIENT
  Age: 57 Year
  Sex: Female
  Weight: 92.52 kg

DRUGS (12)
  1. TOFACITINIB CITRATE [Suspect]
     Indication: PLAQUE PSORIASIS
     Dosage: 5 mg, 2x/day
     Route: 048
     Dates: start: 20111212
  2. CELEXA [Concomitant]
     Indication: DEPRESSION
     Dosage: 60 mg, 1x/day
     Route: 048
     Dates: start: 20090101
  3. SYNTHROID [Concomitant]
     Indication: HYPOTHYROIDISM
     Dosage: 200 ug, 1x/day
     Route: 048
     Dates: start: 20120418
  4. DIOVANE [Concomitant]
     Indication: HYPERTENSION
     Dosage: 40 mg, 1x/day
     Route: 048
     Dates: start: 20120418
  5. ESIDRIX [Concomitant]
     Indication: HYPERTENSION
     Dosage: 25 mg, 1x/day
     Route: 048
     Dates: start: 20120206
  6. METHYLFOLATE [Concomitant]
     Indication: SUPPLEMENTATION THERAPY
     Dosage: 15 mg, 1x/day
     Route: 048
     Dates: start: 20080101
  7. KLONOPIN [Concomitant]
     Indication: BIPOLAR DISORDER
     Dosage: UNK
     Route: 048
     Dates: start: 2010
  8. MIRAPEX [Concomitant]
     Indication: RESTLESS LEGS
     Dosage: 6 mg, 1x/day
     Route: 048
     Dates: start: 19960101
  9. NORVASC [Concomitant]
     Indication: HYPERTENSION
     Dosage: 5 mg, 1x/day
     Route: 048
     Dates: start: 20120523
  10. LAMICTAL [Concomitant]
     Indication: DEPRESSION
     Dosage: 150 mg, 1x/day
     Route: 048
     Dates: start: 20110101
  11. LAMICTAL [Concomitant]
     Indication: ANXIETY
  12. LAMICTAL [Concomitant]
     Indication: BIPOLAR DISORDER

REACTIONS (1)
  - Myocardial ischaemia [Recovered/Resolved]
